FAERS Safety Report 6578606-3 (Version None)
Quarter: 2010Q1

REPORT INFORMATION
  Report Type: 
  Country: None (occurrence: None)
  Receive Date: 20100211
  Receipt Date: 20100210
  Transmission Date: 20100710
  Serious: Yes (Hospitalization)
  Sender: FDA-Public Use
  Company Number: JP-ABBOTT-09P-087-0603843-00

PATIENT
  Sex: Female
  Weight: 40 kg

DRUGS (5)
  1. HUMIRA [Suspect]
     Indication: RHEUMATOID ARTHRITIS
     Route: 058
     Dates: start: 20090729
  2. HUMIRA [Suspect]
     Route: 058
     Dates: start: 20091204
  3. METHOTREXATE [Concomitant]
     Indication: RHEUMATOID ARTHRITIS
  4. LOXOPROFEN SODIUM HYDRATE [Concomitant]
     Indication: RHEUMATOID ARTHRITIS
  5. FOLIC ACID [Concomitant]
     Indication: RHEUMATOID ARTHRITIS

REACTIONS (3)
  - BACK PAIN [None]
  - CONTUSION [None]
  - FALL [None]
